FAERS Safety Report 7064790-4 (Version None)
Quarter: 2010Q4

REPORT INFORMATION
  Report Type: 
  Country: None (occurrence: None)
  Receive Date: 20101027
  Receipt Date: 20101014
  Transmission Date: 20110411
  Serious: Yes (Hospitalization, Other)
  Sender: FDA-Public Use
  Company Number: FR-ELI_LILLY_AND_COMPANY-FR201010002988

PATIENT
  Sex: Female

DRUGS (5)
  1. PROZAC [Suspect]
     Indication: PSYCHOTIC DISORDER
     Dosage: 20 MG, DAILY (1/D)
     Route: 048
  2. RIVOTRIL [Concomitant]
     Indication: PSYCHOTIC DISORDER
     Dosage: 0.5 MG, 3/D
     Route: 048
     Dates: start: 20090322
  3. LEXOMIL [Concomitant]
     Indication: PSYCHOTIC DISORDER
     Dosage: 0.5 MG, DAILY (1/D)
     Route: 048
     Dates: start: 20090322
  4. RISPERDAL [Concomitant]
     Indication: PSYCHOTIC DISORDER
     Dosage: 1 D/F, DAILY (1/D)
     Route: 048
     Dates: end: 20090504
  5. IMOVANE [Concomitant]
     Indication: PSYCHOTIC DISORDER
     Dosage: 1 D/F, DAILY (1/D)
     Route: 048

REACTIONS (5)
  - ABNORMAL BEHAVIOUR [None]
  - ASTHENIA [None]
  - HEPATIC ENZYME INCREASED [None]
  - OFF LABEL USE [None]
  - PRURITUS [None]
